FAERS Safety Report 14938908 (Version 1)
Quarter: 2018Q2

REPORT INFORMATION
  Report Type: Spontaneous
  Country: NL (occurrence: NL)
  Receive Date: 20180525
  Receipt Date: 20180525
  Transmission Date: 20180711
  Serious: Yes (Other)
  Sender: FDA-Public Use
  Company Number: PHHY2018NL003303

PATIENT
  Age: 48 Year
  Sex: Female
  Weight: 70 kg

DRUGS (1)
  1. GILENYA [Suspect]
     Active Substance: FINGOLIMOD HYDROCHLORIDE
     Indication: RELAPSING-REMITTING MULTIPLE SCLEROSIS
     Dosage: 0.5 MG, QD
     Route: 065
     Dates: start: 20150501

REACTIONS (2)
  - Vaginal haemorrhage [Recovering/Resolving]
  - Smear cervix abnormal [Recovering/Resolving]

NARRATIVE: CASE EVENT DATE: 20170917
